FAERS Safety Report 5019450-8 (Version None)
Quarter: 2006Q2

REPORT INFORMATION
  Report Type: 
  Country: None (occurrence: None)
  Receive Date: 20060531
  Receipt Date: 20060516
  Transmission Date: 20061013
  Serious: Yes (Other)
  Sender: FDA-Public Use
  Company Number: 2006MP000027

PATIENT
  Age: 84 Year
  Sex: Male

DRUGS (1)
  1. AGGRASTAT [Suspect]
     Indication: CORONARY ANGIOPLASTY
     Dosage: 10 UG/KG X1 IV ; 0.15 UG/KG IV
     Route: 042

REACTIONS (8)
  - ACUTE CORONARY SYNDROME [None]
  - ANTIBODY TEST POSITIVE [None]
  - BLOOD IMMUNOGLOBULIN G INCREASED [None]
  - CHEST PAIN [None]
  - DRUG SPECIFIC ANTIBODY PRESENT [None]
  - HAEMORRHAGE [None]
  - INTRACARDIAC THROMBUS [None]
  - THROMBOCYTOPENIA [None]
